FAERS Safety Report 9953155 (Version 1)
Quarter: 2014Q1

REPORT INFORMATION
  Report Type: Spontaneous
  Country: US (occurrence: US)
  Receive Date: 20140304
  Receipt Date: 20140304
  Transmission Date: 20141002
  Serious: No
  Sender: FDA-Public Use
  Company Number: US-AMGEN-USASP2013071504

PATIENT
  Age: 53 Year
  Sex: Female
  Weight: 59.86 kg

DRUGS (4)
  1. ENBREL [Suspect]
     Indication: PRODUCT USED FOR UNKNOWN INDICATION
     Dosage: 50 MG/ML, QWK
     Route: 058
  2. VICODIN ES [Concomitant]
     Dosage: UNK, 5-750
  3. ATIVAN [Concomitant]
     Dosage: 0.5 MG, UNK
  4. NAPROXEN [Concomitant]
     Dosage: 375 MG, UNK

REACTIONS (1)
  - Cystitis [Unknown]
